FAERS Safety Report 15929385 (Version 2)
Quarter: 2019Q1

REPORT INFORMATION
  Report Type: Spontaneous
  Country: US (occurrence: US)
  Receive Date: 20190206
  Receipt Date: 20190225
  Transmission Date: 20190417
  Serious: No
  Sender: FDA-Public Use
  Company Number: US-SA-2019SA029632

PATIENT
  Sex: Male

DRUGS (3)
  1. LANTUS SOLOSTAR [Suspect]
     Active Substance: INSULIN GLARGINE
     Indication: TYPE 2 DIABETES MELLITUS
     Dosage: 5-6 U, EVERY AM
     Route: 065
     Dates: start: 201812
  2. PREDNISONE. [Suspect]
     Active Substance: PREDNISONE
     Dosage: 7 MG FROM 15 MG QD
     Route: 065
  3. TRAJENTA [Concomitant]
     Active Substance: LINAGLIPTIN
     Route: 065

REACTIONS (3)
  - Needle issue [Unknown]
  - Blood glucose increased [Unknown]
  - Product storage error [Unknown]
